FAERS Safety Report 13121088 (Version 4)
Quarter: 2017Q1

REPORT INFORMATION
  Report Type: Spontaneous
  Country: CA (occurrence: CA)
  Receive Date: 20170117
  Receipt Date: 20170308
  Transmission Date: 20170428
  Serious: Yes (Other)
  Sender: FDA-Public Use
  Company Number: CA-SA-2017SA006035

PATIENT
  Age: 63 Year
  Sex: Female

DRUGS (12)
  1. XELJANZ [Concomitant]
     Active Substance: TOFACITINIB CITRATE
     Indication: RHEUMATOID ARTHRITIS
     Route: 048
     Dates: start: 20160610
  2. METHOTREXATE SODIUM. [Suspect]
     Active Substance: METHOTREXATE SODIUM
     Indication: RHEUMATOID ARTHRITIS
     Route: 048
     Dates: start: 2010, end: 2015
  3. REMICADE [Suspect]
     Active Substance: INFLIXIMAB
     Indication: RHEUMATOID ARTHRITIS
     Route: 065
  4. ORENCIA [Suspect]
     Active Substance: ABATACEPT
     Route: 065
     Dates: end: 201508
  5. PREDNISONE. [Concomitant]
     Active Substance: PREDNISONE
     Route: 065
  6. ENBREL [Suspect]
     Active Substance: ETANERCEPT
     Indication: RHEUMATOID ARTHRITIS
     Route: 058
  7. SULFASALAZINE. [Suspect]
     Active Substance: SULFASALAZINE
     Indication: RHEUMATOID ARTHRITIS
     Route: 048
     Dates: start: 2010
  8. SULFASALAZINE. [Suspect]
     Active Substance: SULFASALAZINE
     Indication: RHEUMATOID ARTHRITIS
     Route: 048
     Dates: start: 2015, end: 2016
  9. HUMIRA [Suspect]
     Active Substance: ADALIMUMAB
     Route: 065
  10. CELEBREX [Concomitant]
     Active Substance: CELECOXIB
     Route: 065
  11. ARAVA [Suspect]
     Active Substance: LEFLUNOMIDE
     Route: 048
  12. PLAQUENIL [Suspect]
     Active Substance: HYDROXYCHLOROQUINE SULFATE
     Route: 065

REACTIONS (13)
  - Rash [Unknown]
  - Rheumatoid arthritis [Unknown]
  - Hepatotoxicity [Unknown]
  - Arthralgia [Unknown]
  - C-reactive protein abnormal [Unknown]
  - Treatment failure [Unknown]
  - Disability [Unknown]
  - Peripheral swelling [Unknown]
  - Pain in extremity [Unknown]
  - Drug ineffective [Unknown]
  - Joint swelling [Unknown]
  - Musculoskeletal pain [Unknown]
  - Red blood cell sedimentation rate abnormal [Unknown]

NARRATIVE: CASE EVENT DATE: 20160525
